FAERS Safety Report 5357684-3 (Version None)
Quarter: 2007Q2

REPORT INFORMATION
  Report Type: 
  Country: None (occurrence: None)
  Receive Date: 20070614
  Receipt Date: 20070604
  Transmission Date: 20071010
  Serious: Yes (Other)
  Sender: FDA-Public Use
  Company Number: FR-PFIZER INC-2007046863

PATIENT
  Age: 66 Year
  Sex: Female

DRUGS (1)
  1. LYRICA [Suspect]
     Indication: CERVICAL ROOT PAIN
     Dates: start: 20070201, end: 20070201

REACTIONS (2)
  - DRUG INEFFECTIVE [None]
  - MIGRAINE [None]
